FAERS Safety Report 13565363 (Version 1)
Quarter: 2017Q2

REPORT INFORMATION
  Report Type: Report from Study
  Country: CO (occurrence: CO)
  Receive Date: 20170519
  Receipt Date: 20170519
  Transmission Date: 20170830
  Serious: Yes (Death, Hospitalization)
  Sender: FDA-Public Use
  Company Number: CO-EMD SERONO-E2B_80065602

PATIENT
  Sex: Female

DRUGS (1)
  1. REBIF [Suspect]
     Active Substance: INTERFERON BETA-1A
     Indication: RELAPSING-REMITTING MULTIPLE SCLEROSIS
     Route: 058
     Dates: start: 20141114

REACTIONS (5)
  - Asthenia [Unknown]
  - Disease complication [Unknown]
  - Ill-defined disorder [Fatal]
  - Inflammation [Unknown]
  - Decreased appetite [Unknown]
